FAERS Safety Report 17440742 (Version 2)
Quarter: 2020Q1

REPORT INFORMATION
  Report Type: Report from Study
  Country: MX (occurrence: MX)
  Receive Date: 20200220
  Receipt Date: 20200228
  Transmission Date: 20200409
  Serious: Yes (Other)
  Sender: FDA-Public Use
  Company Number: NVSC2020MX044313

PATIENT
  Age: 81 Year
  Sex: Male
  Weight: 79 kg

DRUGS (5)
  1. LEVODOPA-CARBIDOPA [Concomitant]
     Active Substance: CARBIDOPA\LEVODOPA
     Indication: PARKINSON^S DISEASE
     Dosage: 1 UNK, Q12H
     Route: 048
  2. SIFROL [Concomitant]
     Active Substance: PRAMIPEXOLE
     Indication: PARKINSON^S DISEASE
     Dosage: 1 UNK, Q12H
     Route: 048
     Dates: start: 2008
  3. LEVODOPA-CARBIDOPA [Concomitant]
     Active Substance: CARBIDOPA\LEVODOPA
     Dosage: 3 UNK, QD
     Route: 048
  4. STALEVO [Suspect]
     Active Substance: CARBIDOPA\ENTACAPONE\LEVODOPA
     Indication: PARKINSON^S DISEASE
     Dosage: 1 DF, QD (100)
     Route: 048
     Dates: start: 2008
  5. STALEVO [Suspect]
     Active Substance: CARBIDOPA\ENTACAPONE\LEVODOPA
     Dosage: 3 DF, QD (150/37.5/200MG)
     Route: 048
     Dates: start: 2017

REACTIONS (6)
  - Product prescribing error [Unknown]
  - Dysstasia [Unknown]
  - Hypertension [Not Recovered/Not Resolved]
  - Fall [Unknown]
  - Syncope [Not Recovered/Not Resolved]
  - Asthenia [Not Recovered/Not Resolved]

NARRATIVE: CASE EVENT DATE: 20200131
